FAERS Safety Report 9245186 (Version 1)
Quarter: 2013Q1

REPORT INFORMATION
  Report Type: Spontaneous
  Country: US (occurrence: None)
  Receive Date: 20121130
  Receipt Date: 20121130
  Transmission Date: 20140127
  Serious: Yes (Other)
  Sender: FDA-Public Use
  Company Number: PHEH2012US004785

PATIENT
  Sex: Female

DRUGS (6)
  1. TEKTURNA [Suspect]
     Dosage: 150MG, UNK
     Dates: start: 20110131
  2. LEVOTHYROXINE (LEVOTHYROXINE) [Concomitant]
  3. LORAZEPAM (LORAZEPAM) [Concomitant]
  4. VERAPAMIL (VERAPAMIL) [Concomitant]
  5. CARDURA (DOXAZOSIN MESILATE) [Concomitant]
  6. CELEXA (CITALOPRAM HYDROBROMIDE) [Concomitant]

REACTIONS (1)
  - Swollen tongue [None]
